APPROVED DRUG PRODUCT: ADAPALENE
Active Ingredient: ADAPALENE
Strength: 0.3%
Dosage Form/Route: GEL;TOPICAL
Application: A213508 | Product #001 | TE Code: AB
Applicant: ALEMBIC PHARMACEUTICALS LTD
Approved: Jun 18, 2020 | RLD: No | RS: No | Type: RX